FAERS Safety Report 5327463-1 (Version None)
Quarter: 2007Q2

REPORT INFORMATION
  Report Type: 
  Country: None (occurrence: None)
  Receive Date: 20070517
  Receipt Date: 20070130
  Transmission Date: 20071010
  Serious: Yes (Hospitalization)
  Sender: FDA-Public Use
  Company Number: US-JNJFOC-20070104087

PATIENT
  Age: 66 Year
  Sex: Female

DRUGS (8)
  1. TRAMADOL HCL [Suspect]
     Indication: DRUG USE FOR UNKNOWN INDICATION
     Route: 065
  2. ISORBIDE [Suspect]
     Indication: DRUG USE FOR UNKNOWN INDICATION
     Route: 065
  3. LISINOPRIL [Suspect]
     Indication: DRUG USE FOR UNKNOWN INDICATION
     Route: 065
  4. CLONIDINE [Suspect]
     Indication: DRUG USE FOR UNKNOWN INDICATION
     Route: 065
  5. TRAZODONE HCL [Suspect]
     Indication: DRUG USE FOR UNKNOWN INDICATION
     Route: 065
  6. CALCIUM  ANTAGONISTS [Suspect]
     Indication: DRUG USE FOR UNKNOWN INDICATION
     Route: 065
  7. ANTIDEPRESSANT [Suspect]
     Indication: DRUG USE FOR UNKNOWN INDICATION
     Route: 065
  8. OXYCODONE HCL [Suspect]
     Indication: DRUG USE FOR UNKNOWN INDICATION
     Route: 065

REACTIONS (8)
  - BRADYCARDIA [None]
  - DEHYDRATION [None]
  - DEPRESSED LEVEL OF CONSCIOUSNESS [None]
  - HYPOTENSION [None]
  - MULTIPLE DRUG OVERDOSE [None]
  - NAUSEA [None]
  - RESPIRATORY DEPRESSION [None]
  - VOMITING [None]
